FAERS Safety Report 12947660 (Version 1)
Quarter: 2016Q4

REPORT INFORMATION
  Report Type: Spontaneous
  Country: US (occurrence: US)
  Receive Date: 20161116
  Receipt Date: 20161116
  Transmission Date: 20170207
  Serious: Yes (Disabling, Other)
  Sender: FDA-Public Use
  Company Number: US-BAYER-2016-214525

PATIENT
  Sex: Female

DRUGS (3)
  1. MIRENA [Suspect]
     Active Substance: LEVONORGESTREL
     Dosage: 20 MCG/24HR, CONT
     Route: 015
     Dates: start: 2013
  2. MIRENA [Suspect]
     Active Substance: LEVONORGESTREL
     Dosage: 20 MCG/24HR, CONT
     Route: 015
  3. MIRENA [Suspect]
     Active Substance: LEVONORGESTREL
     Dosage: 20 MCG/24HR, CONT
     Route: 015

REACTIONS (14)
  - Cervix dystocia [None]
  - Headache [Not Recovered/Not Resolved]
  - Hypoaesthesia [None]
  - Breast pain [Not Recovered/Not Resolved]
  - Autoimmune disorder [Not Recovered/Not Resolved]
  - Maternal exposure before pregnancy [None]
  - Tooth disorder [None]
  - Disability [Not Recovered/Not Resolved]
  - Infection [None]
  - Arthralgia [None]
  - Cervix disorder [None]
  - Chemical poisoning [None]
  - Fatigue [Not Recovered/Not Resolved]
  - Device use issue [None]
